APPROVED DRUG PRODUCT: LOPID
Active Ingredient: GEMFIBROZIL
Strength: 300MG
Dosage Form/Route: CAPSULE;ORAL
Application: N018422 | Product #002
Applicant: PFIZER PHARMACEUTICALS LTD
Approved: Approved Prior to Jan 1, 1982 | RLD: No | RS: No | Type: DISCN